FAERS Safety Report 11999723 (Version 2)
Quarter: 2016Q1

REPORT INFORMATION
  Report Type: Report from Study
  Country: US (occurrence: US)
  Receive Date: 20160204
  Receipt Date: 20160308
  Transmission Date: 20160526
  Serious: Yes (Life-Threatening, Hospitalization)
  Sender: FDA-Public Use
  Company Number: PHEH2016US002576

PATIENT
  Age: 77 Year
  Sex: Male

DRUGS (1)
  1. VOTRIENT [Suspect]
     Active Substance: PAZOPANIB HYDROCHLORIDE
     Indication: RENAL CANCER
     Dosage: 400 MG, UNK
     Route: 048
     Dates: start: 20150316, end: 20150810

REACTIONS (3)
  - Lyme disease [Unknown]
  - Malaise [Unknown]
  - Babesiosis [Recovered/Resolved]

NARRATIVE: CASE EVENT DATE: 20150810
